FAERS Safety Report 5388908-4 (Version None)
Quarter: 2007Q3

REPORT INFORMATION
  Report Type: 
  Country: None (occurrence: None)
  Receive Date: 20070713
  Receipt Date: 20070713
  Transmission Date: 20080115
  Serious: Yes (Other)
  Sender: FDA-Public Use
  Company Number: None

PATIENT

DRUGS (1)
  1. TUBERSOL [Suspect]
     Indication: TUBERCULIN TEST
     Dosage: 5US ID
     Route: 023
     Dates: start: 20070610, end: 20070710

REACTIONS (4)
  - ANAPHYLACTOID REACTION [None]
  - OEDEMA PERIPHERAL [None]
  - SKIN WARM [None]
  - SWOLLEN TONGUE [None]
